FAERS Safety Report 14777061 (Version 2)
Quarter: 2018Q2

REPORT INFORMATION
  Report Type: Report from Study
  Country: None (occurrence: US)
  Receive Date: 20180419
  Receipt Date: 20180523
  Transmission Date: 20180711
  Serious: Yes (Other)
  Sender: FDA-Public Use
  Company Number: US-ABBVIE-18K-163-2327683-00

PATIENT
  Age: 61 Year
  Sex: Female

DRUGS (15)
  1. CALCIUM/VITAMIN D [Concomitant]
     Active Substance: CALCIUM\VITAMIN D
     Indication: OSTEOPENIA
  2. FLEXERIL [Concomitant]
     Active Substance: CYCLOBENZAPRINE HYDROCHLORIDE
     Indication: HEADACHE
  3. HUMIRA [Suspect]
     Active Substance: ADALIMUMAB
     Indication: RHEUMATOID ARTHRITIS
     Route: 058
     Dates: start: 2014
  4. NEURONTIN [Concomitant]
     Active Substance: GABAPENTIN
     Indication: TONIC CLONIC MOVEMENTS
  5. XANAX [Concomitant]
     Active Substance: ALPRAZOLAM
     Indication: HEADACHE
  6. DILAUDID [Concomitant]
     Active Substance: HYDROMORPHONE HYDROCHLORIDE
     Indication: BACK PAIN
  7. MORPHINE [Concomitant]
     Active Substance: MORPHINE
     Indication: BACK PAIN
  8. PROTONIX [Concomitant]
     Active Substance: PANTOPRAZOLE SODIUM
     Indication: GASTRIC ULCER
  9. HCTZ [Concomitant]
     Active Substance: HYDROCHLOROTHIAZIDE
     Indication: PERIPHERAL SWELLING
  10. ZONEGRAN [Concomitant]
     Active Substance: ZONISAMIDE
     Indication: HEADACHE
  11. BACLOFEN. [Concomitant]
     Active Substance: BACLOFEN
     Indication: BACK PAIN
  12. ASPIRIN. [Concomitant]
     Active Substance: ASPIRIN
     Indication: CARDIAC DISORDER
  13. OXYBUTYNIN. [Concomitant]
     Active Substance: OXYBUTYNIN CHLORIDE
     Indication: STRESS URINARY INCONTINENCE
  14. COUMADIN [Concomitant]
     Active Substance: WARFARIN SODIUM
     Indication: DEEP VEIN THROMBOSIS
  15. FIORICET WITH CODEINE [Concomitant]
     Active Substance: ACETAMINOPHEN\BUTALBITAL\CAFFEINE\CODEINE PHOSPHATE
     Indication: HEADACHE

REACTIONS (7)
  - Malaise [Unknown]
  - Antinuclear antibody increased [Unknown]
  - Alopecia [Unknown]
  - Peripheral swelling [Recovered/Resolved]
  - Erythema [Recovered/Resolved]
  - Systemic lupus erythematosus [Unknown]
  - Pyrexia [Unknown]

NARRATIVE: CASE EVENT DATE: 201710
